FAERS Safety Report 8326594-1 (Version None)
Quarter: 2012Q2

REPORT INFORMATION
  Report Type: 
  Country: None (occurrence: None)
  Receive Date: 20120501
  Receipt Date: 20120423
  Transmission Date: 20120825
  Serious: Yes (Hospitalization, Other)
  Sender: FDA-Public Use
  Company Number: US-ABBOTT-12P-163-0928844-00

PATIENT
  Sex: Female
  Weight: 54.48 kg

DRUGS (4)
  1. MULTI-VITAMINS [Concomitant]
     Indication: VITAMIN SUPPLEMENTATION
  2. HUMIRA [Suspect]
     Indication: CROHN'S DISEASE
     Route: 058
     Dates: start: 20100601
  3. ASACOL [Concomitant]
     Indication: CROHN'S DISEASE
  4. IMURAN [Concomitant]
     Indication: CROHN'S DISEASE

REACTIONS (6)
  - ASPIRATION [None]
  - CLOSTRIDIUM DIFFICILE COLITIS [None]
  - PNEUMONIA ASPIRATION [None]
  - OXYGEN SATURATION DECREASED [None]
  - CROHN'S DISEASE [None]
  - VOMITING [None]
